FAERS Safety Report 9344574 (Version 1)
Quarter: 2013Q2

REPORT INFORMATION
  Report Type: Spontaneous
  Country: US (occurrence: None)
  Receive Date: 20130611
  Receipt Date: 20130611
  Transmission Date: 20140414
  Serious: Yes (Hospitalization)
  Sender: FDA-Public Use
  Company Number: None

PATIENT
  Age: 57 Year
  Sex: Male
  Weight: 82 kg

DRUGS (1)
  1. FOSCARNET [Suspect]
     Indication: CYTOMEGALOVIRUS INFECTION
     Route: 041
     Dates: start: 20130607, end: 20130608

REACTIONS (7)
  - Pyrexia [None]
  - Headache [None]
  - Pain in jaw [None]
  - Pleuritic pain [None]
  - Nausea [None]
  - Dizziness [None]
  - Dyspnoea [None]
